FAERS Safety Report 18224824 (Version 1)
Quarter: 2020Q3

REPORT INFORMATION
  Report Type: Spontaneous
  Country: US (occurrence: US)
  Receive Date: 20200902
  Receipt Date: 20200902
  Transmission Date: 20201103
  Serious: No
  Sender: FDA-Public Use
  Company Number: US-AMAG PHARMACEUTICALS, INC.-AMAG202002840

PATIENT
  Sex: Female
  Weight: 53.57 kg

DRUGS (2)
  1. INTRAROSA [Suspect]
     Active Substance: PRASTERONE
     Indication: VAGINAL INFECTION
  2. INTRAROSA [Suspect]
     Active Substance: PRASTERONE
     Indication: BLOOD OESTROGEN DECREASED
     Dosage: THE PATIENT REPORTS USING THE MEDICATION FOR ~2.5 MONTHS, FOR THE LAST ^LITTLE WHILE^ SHE HAS BEEN U
     Route: 067

REACTIONS (5)
  - Underdose [Unknown]
  - Nausea [Not Recovered/Not Resolved]
  - Diarrhoea [Not Recovered/Not Resolved]
  - Off label use [Unknown]
  - Product administration error [Unknown]

NARRATIVE: CASE EVENT DATE: 2020
